FAERS Safety Report 16711038 (Version 1)
Quarter: 2019Q4

REPORT INFORMATION
  Report Type: Spontaneous
  Country: US (occurrence: US)
  Receive Date: 20190816
  Receipt Date: 20190816
  Transmission Date: 20200122
  Serious: Yes (Hospitalization)
  Sender: FDA-Public Use
  Company Number: None

PATIENT
  Age: 52 Year
  Sex: Female

DRUGS (10)
  1. OXYCODONE CAP 5 MG [Concomitant]
  2. PREDNISONE TAB 10 MG [Concomitant]
  3. TYLENOL TAB 500 MG [Concomitant]
  4. CELEBREX CAP 100 MG [Concomitant]
  5. PROTONIX TAB 20 MG [Concomitant]
  6. LYRICA CAP 100 MG [Concomitant]
  7. SILDENAFIL. [Suspect]
     Active Substance: SILDENAFIL
     Indication: PULMONARY ARTERIAL HYPERTENSION
     Route: 048
     Dates: start: 20150710
  8. CELLCEPT CAP 250 MG [Concomitant]
  9. ADVIL CAP 200 MG [Concomitant]
  10. NEXIUM CAP 20 MG [Concomitant]

REACTIONS (2)
  - Therapy cessation [None]
  - Infection [None]
